FAERS Safety Report 6060101-1 (Version None)
Quarter: 2009Q1

REPORT INFORMATION
  Report Type: 
  Country: None (occurrence: None)
  Receive Date: 20090128
  Receipt Date: 20090122
  Transmission Date: 20090719
  Serious: Yes (Life-Threatening, Hospitalization)
  Sender: FDA-Public Use
  Company Number: 2009-190161-NL

PATIENT
  Age: 44 Year
  Sex: Female

DRUGS (13)
  1. DEXAMETHASONE [Suspect]
     Dosage: DF
  2. ROCURONIUM BROMIDE [Suspect]
  3. CITALOPRAM HYDROBROMIDE [Suspect]
     Dosage: 20 MG QD
  4. METHYLENE BLUE (SEE ATTACHED PAGES FOR ADDITIONAL SUSPECT DRUGS) [Suspect]
  5. MORPHINE [Suspect]
     Indication: ANALGESIA
     Dosage: DF
  6. PROPOFOL [Suspect]
     Indication: SEDATION
  7. REMIFENTANIL [Suspect]
  8. ACETYLSALICYLIC ACID SRT [Concomitant]
  9. ATENOLOL [Concomitant]
  10. BENDROFLUMETHIAZIDE [Concomitant]
  11. FELODIPINE [Concomitant]
  12. ISOSORBIDE MONONITRATE [Concomitant]
  13. SIMVASTATIN [Concomitant]

REACTIONS (5)
  - BLOOD PHOSPHORUS INCREASED [None]
  - BLOOD TEST ABNORMAL [None]
  - DRUG TOXICITY [None]
  - SEROTONIN SYNDROME [None]
  - SYSTEMIC INFLAMMATORY RESPONSE SYNDROME [None]
